FAERS Safety Report 7781167-4 (Version None)
Quarter: 2011Q3

REPORT INFORMATION
  Report Type: 
  Country: None (occurrence: None)
  Receive Date: 20110927
  Receipt Date: 20110925
  Transmission Date: 20111222
  Serious: Yes (Death, Other)
  Sender: FDA-Public Use
  Company Number: PHHY2011NL40341

PATIENT
  Sex: Male

DRUGS (3)
  1. ZOMETA [Suspect]
     Indication: METASTASES TO BONE
     Dosage: 4 MG/5 ML
     Dates: start: 20100803
  2. ZOMETA [Suspect]
     Dosage: 4MG/ 5 ML
     Dates: start: 20110412
  3. ZOMETA [Suspect]
     Dosage: 4 MG/ 5 ML
     Dates: start: 20110830

REACTIONS (7)
  - NEOPLASM MALIGNANT [None]
  - METASTASES TO BONE [None]
  - METASTASES TO LIVER [None]
  - FEELING ABNORMAL [None]
  - NEOPLASM PROGRESSION [None]
  - CONFUSIONAL STATE [None]
  - DELIRIUM [None]
